FAERS Safety Report 12308222 (Version 1)
Quarter: 2016Q2

REPORT INFORMATION
  Report Type: Report from Study
  Country: CA (occurrence: CA)
  Receive Date: 20160426
  Receipt Date: 20160426
  Transmission Date: 20160815
  Serious: Yes (Other)
  Sender: FDA-Public Use
  Company Number: PHHY2016CA038090

PATIENT
  Sex: Female

DRUGS (2)
  1. VOTRIENT [Suspect]
     Active Substance: PAZOPANIB HYDROCHLORIDE
     Dosage: 600 MG, QD
     Route: 048
  2. VOTRIENT [Suspect]
     Active Substance: PAZOPANIB HYDROCHLORIDE
     Indication: METASTATIC RENAL CELL CARCINOMA
     Dosage: 800 MG, QD
     Route: 048
     Dates: start: 20160315

REACTIONS (9)
  - Blood thyroid stimulating hormone increased [Unknown]
  - Pulmonary pain [Not Recovered/Not Resolved]
  - Mouth ulceration [Unknown]
  - Oral pain [Unknown]
  - Diarrhoea [Unknown]
  - Chest pain [Unknown]
  - Hypertension [Recovered/Resolved]
  - Pleural effusion [Unknown]
  - Headache [Unknown]
